FAERS Safety Report 13965607 (Version 1)
Quarter: 2017Q3

REPORT INFORMATION
  Report Type: Spontaneous
  Country: GB (occurrence: GB)
  Receive Date: 20170913
  Receipt Date: 20170913
  Transmission Date: 20171128
  Serious: Yes (Life-Threatening, Hospitalization)
  Sender: FDA-Public Use
  Company Number: GB-PFIZER INC-626149

PATIENT
  Age: 28 Year
  Sex: Male

DRUGS (9)
  1. DEXAMETHASONE. [Concomitant]
     Active Substance: DEXAMETHASONE
     Dosage: 8 MG, FREQ: 1 DAY; INTERVAL: 2
     Dates: start: 20091229, end: 20100102
  2. CISPLATIN. [Suspect]
     Active Substance: CISPLATIN
     Dosage: 99 MG, UNK
     Route: 042
     Dates: start: 20091229, end: 20091230
  3. ETOPOSIDE. [Suspect]
     Active Substance: ETOPOSIDE
     Dosage: 330 MG, UNK
     Route: 042
     Dates: start: 20091229, end: 20091231
  4. NEULASTA [Suspect]
     Active Substance: PEGFILGRASTIM
     Dosage: 300 UG, UNK
     Route: 058
     Dates: start: 20100601
  5. APREPITANT. [Concomitant]
     Active Substance: APREPITANT
     Dosage: 125 MG, UNK
     Dates: start: 20091229, end: 20091231
  6. BLEOMYCIN [Concomitant]
     Active Substance: BLEOMYCIN SULFATE
     Dosage: UNK
     Route: 042
     Dates: start: 20091230, end: 20091230
  7. METOCLOPRAMIDE. [Concomitant]
     Active Substance: METOCLOPRAMIDE
     Dosage: 10 MG, UNK
     Route: 048
     Dates: start: 20091229
  8. ONDANSETRON [Concomitant]
     Active Substance: ONDANSETRON
     Dosage: 8 MG, FREQ: 1 DAY; INTERVAL: 2
     Dates: start: 20091229, end: 20100102
  9. NEULASTA [Suspect]
     Active Substance: PEGFILGRASTIM
     Dosage: 6 MG, UNK
     Route: 058
     Dates: start: 20100106

REACTIONS (3)
  - Drug ineffective [Unknown]
  - Facial pain [Unknown]
  - Febrile neutropenia [Recovered/Resolved]

NARRATIVE: CASE EVENT DATE: 20100107
